FAERS Safety Report 8857260 (Version 2)
Quarter: 2013Q1

REPORT INFORMATION
  Report Type: Spontaneous
  Country: US (occurrence: US)
  Receive Date: 20121024
  Receipt Date: 20130122
  Transmission Date: 20140127
  Serious: No
  Sender: FDA-Public Use
  Company Number: US-009507513-1210USA010036

PATIENT
  Age: 76 Year
  Sex: Male

DRUGS (8)
  1. JANUMET [Suspect]
     Indication: TYPE 2 DIABETES MELLITUS
     Dosage: 50/500 MG, BID
     Route: 048
     Dates: start: 200710
  2. ALLEGRA [Concomitant]
  3. NEXIUM [Concomitant]
  4. QUINAPRIL HYDROCHLORIDE [Concomitant]
  5. MINOCYCLINE [Concomitant]
  6. WELCHOL [Concomitant]
  7. STEROIDAL SAPOGENIN (UNSPECIFIED) [Concomitant]
  8. TYLENOL [Concomitant]

REACTIONS (3)
  - Blood glucose abnormal [Recovered/Resolved]
  - Blood glucose increased [Recovered/Resolved]
  - Drug ineffective [Unknown]
